FAERS Safety Report 13460815 (Version 2)
Quarter: 2017Q2

REPORT INFORMATION
  Report Type: Spontaneous
  Country: CN (occurrence: CN)
  Receive Date: 20170420
  Receipt Date: 20170420
  Transmission Date: 20170830
  Serious: Yes (Other)
  Sender: FDA-Public Use
  Company Number: CN-BRISTOL-MYERS SQUIBB COMPANY-BMS-2017-034055

PATIENT

DRUGS (1)
  1. GLUCOPHAGE [Suspect]
     Active Substance: METFORMIN HYDROCHLORIDE
     Indication: DIABETES MELLITUS
     Dosage: 1 TAB, BID
     Route: 048
     Dates: start: 2012

REACTIONS (5)
  - Nausea [Unknown]
  - Gastritis [Unknown]
  - Weight decreased [Unknown]
  - Hepatic steatosis [Unknown]
  - Gastritis erosive [Unknown]

NARRATIVE: CASE EVENT DATE: 201611
